FAERS Safety Report 5984165-6 (Version None)
Quarter: 2008Q4

REPORT INFORMATION
  Report Type: 
  Country: None (occurrence: None)
  Receive Date: 20081208
  Receipt Date: 20081007
  Transmission Date: 20090506
  Serious: Yes (Other)
  Sender: FDA-Public Use
  Company Number: US-AMGEN-QUU309532

PATIENT
  Sex: Female
  Weight: 75 kg

DRUGS (4)
  1. ENBREL [Suspect]
     Indication: JUVENILE ARTHRITIS
     Route: 058
     Dates: start: 20080918
  2. METHOTREXATE [Concomitant]
     Route: 030
     Dates: start: 20080903
  3. FOLIC ACID [Concomitant]
     Dates: start: 20080903
  4. MOBIC [Concomitant]

REACTIONS (3)
  - ABNORMAL BEHAVIOUR [None]
  - CRYING [None]
  - DEPRESSED MOOD [None]
